FAERS Safety Report 8174794-6 (Version None)
Quarter: 2012Q1

REPORT INFORMATION
  Report Type: 
  Country: None (occurrence: None)
  Receive Date: 20120229
  Receipt Date: 20120221
  Transmission Date: 20120608
  Serious: Yes (Hospitalization)
  Sender: FDA-Public Use
  Company Number: CN-PFIZER INC-2012046452

PATIENT
  Age: 64 Year
  Sex: Male

DRUGS (4)
  1. SUNITINIB MALATE [Suspect]
     Dosage: 25 MG, 1X/DAY
     Dates: start: 20100419
  2. SUNITINIB MALATE [Suspect]
     Indication: RENAL CELL CARCINOMA
     Dosage: 50 MG, 1X/DAY
     Route: 048
     Dates: start: 20091210, end: 20100208
  3. SUNITINIB MALATE [Suspect]
     Dosage: 37.5 MG, 1X/DAY
     Dates: start: 20100209, end: 20100327
  4. MECOBALAMIN [Concomitant]
     Dosage: UNK

REACTIONS (1)
  - COMA [None]
